FAERS Safety Report 22159804 (Version 1)
Quarter: 2023Q1

REPORT INFORMATION
  Report Type: Spontaneous
  Country: US (occurrence: US)
  Receive Date: 20230331
  Receipt Date: 20230331
  Transmission Date: 20230417
  Serious: No
  Sender: FDA-Public Use
  Company Number: US-PADAGIS-2023PAD00389

PATIENT

DRUGS (29)
  1. CLOBETASOL PROPIONATE [Suspect]
     Active Substance: CLOBETASOL PROPIONATE
     Indication: Granuloma skin
     Dosage: 2-3 TIMES WEEKLY
     Route: 065
     Dates: start: 20181205
  2. CLOBETASOL PROPIONATE [Suspect]
     Active Substance: CLOBETASOL PROPIONATE
     Dosage: UNK (OINTMENT) DAILY AS NEEDED
     Route: 065
     Dates: start: 20180518, end: 20181205
  3. MUPIROCIN [Suspect]
     Active Substance: MUPIROCIN
     Indication: Granuloma skin
     Dosage: 2%, BID
     Route: 065
     Dates: start: 20191122, end: 20200217
  4. MUPIROCIN [Suspect]
     Active Substance: MUPIROCIN
     Dosage: 2%, BID
     Route: 065
     Dates: start: 20200612, end: 20210121
  5. FEXOFENADINE [Suspect]
     Active Substance: FEXOFENADINE HYDROCHLORIDE
     Indication: Granuloma skin
     Dosage: UNK
     Route: 065
  6. LORATADINE [Suspect]
     Active Substance: LORATADINE
     Indication: Granuloma skin
     Dosage: 10 MG DAILY, AS NEEDED
     Route: 065
     Dates: start: 20180518
  7. HYDROXYZINE [Suspect]
     Active Substance: HYDROXYZINE HYDROCHLORIDE
     Indication: Granuloma skin
     Dosage: 25-50 MG (1-2 PILLS DAILY AS NEEDED)
     Route: 065
     Dates: start: 20180518, end: 20180822
  8. HYDROXYZINE [Suspect]
     Active Substance: HYDROXYZINE HYDROCHLORIDE
     Dosage: 10 MG DAILY, AS NEEDED
     Route: 065
     Dates: start: 20200612, end: 20200929
  9. METHOTREXATE [Suspect]
     Active Substance: METHOTREXATE
     Indication: Granuloma skin
     Dosage: UNK
     Route: 026
  10. METHOTREXATE [Suspect]
     Active Substance: METHOTREXATE
     Dosage: 15 MG, WEEKLY
     Route: 048
     Dates: start: 20171213, end: 20180426
  11. METHOTREXATE [Suspect]
     Active Substance: METHOTREXATE
     Dosage: 25 MG, WEEKLY
     Route: 048
     Dates: start: 20180518, end: 20190415
  12. METHOTREXATE [Suspect]
     Active Substance: METHOTREXATE
     Dosage: 15 MG, WEEKLY
     Route: 048
     Dates: start: 20190415, end: 20190523
  13. METHOTREXATE [Suspect]
     Active Substance: METHOTREXATE
     Dosage: 25 MG, WEEKLY
     Route: 048
     Dates: start: 20190523
  14. FLUOROURACIL SODIUM [Suspect]
     Active Substance: FLUOROURACIL SODIUM
     Indication: Granuloma skin
     Dosage: UNK
     Route: 026
  15. DAPSONE [Suspect]
     Active Substance: DAPSONE
     Indication: Granuloma skin
     Dosage: 25 MG, QD
     Route: 048
     Dates: start: 20181010, end: 20181205
  16. DAPSONE [Suspect]
     Active Substance: DAPSONE
     Dosage: 100 MG, QD
     Route: 048
     Dates: start: 20181205, end: 20191122
  17. DAPSONE [Suspect]
     Active Substance: DAPSONE
     Dosage: 150 MG, QD
     Route: 048
     Dates: start: 20191122, end: 20200918
  18. DAPSONE [Suspect]
     Active Substance: DAPSONE
     Dosage: 100 MG, QD
     Route: 048
     Dates: start: 20200918, end: 20201120
  19. DAPSONE [Suspect]
     Active Substance: DAPSONE
     Dosage: 50 MG, QD
     Route: 048
     Dates: start: 20201120, end: 20210716
  20. DAPSONE [Suspect]
     Active Substance: DAPSONE
     Dosage: 100 MG, QD
     Route: 048
     Dates: start: 20210716, end: 20220331
  21. DAPSONE [Suspect]
     Active Substance: DAPSONE
     Dosage: 150 MG, QD
     Route: 048
     Dates: start: 20220331, end: 20220602
  22. HYDROXYCHLOROQUINE [Suspect]
     Active Substance: HYDROXYCHLOROQUINE
     Indication: Granuloma skin
     Dosage: 400 MG, BID
     Route: 065
     Dates: start: 20201102, end: 20220602
  23. HYDROXYCHLOROQUINE [Suspect]
     Active Substance: HYDROXYCHLOROQUINE
     Dosage: 200 MG, QD
     Route: 065
     Dates: start: 20220602, end: 20221021
  24. GABAPENTIN [Suspect]
     Active Substance: GABAPENTIN
     Indication: Granuloma skin
     Dosage: 300 MG, QD
     Route: 065
     Dates: start: 20220331, end: 20221021
  25. MINOCYCLINE [Suspect]
     Active Substance: MINOCYCLINE HYDROCHLORIDE
     Indication: Granuloma skin
     Dosage: 100 MG, BID
     Route: 065
     Dates: start: 20180905, end: 20181017
  26. TACROLIMUS [Suspect]
     Active Substance: TACROLIMUS
     Indication: Granuloma skin
     Dosage: 0.1%, BID
     Route: 065
     Dates: start: 20210108, end: 20210820
  27. TACROLIMUS [Suspect]
     Active Substance: TACROLIMUS
     Dosage: 0.1%, BID
     Route: 065
     Dates: start: 20220321, end: 20220504
  28. DOXEPIN [Suspect]
     Active Substance: DOXEPIN
     Indication: Granuloma skin
     Dosage: 10 MG/ML, QD
     Route: 065
     Dates: start: 20210414, end: 20210813
  29. CYCLOSPORINE [Concomitant]
     Active Substance: CYCLOSPORINE
     Indication: Product used for unknown indication
     Dosage: UNK
     Route: 048

REACTIONS (2)
  - Drug ineffective for unapproved indication [Unknown]
  - Therapy partial responder [Unknown]
